FAERS Safety Report 10081409 (Version 1)
Quarter: 2014Q2

REPORT INFORMATION
  Report Type: Spontaneous
  Country: US (occurrence: None)
  Receive Date: 20140415
  Receipt Date: 20140415
  Transmission Date: 20141212
  Serious: Yes (Hospitalization)
  Sender: FDA-Public Use
  Company Number: None

PATIENT
  Age: 60 Year
  Sex: Male

DRUGS (2)
  1. METHYLENE BLUE [Suspect]
     Indication: BIOPSY LYMPH GLAND
     Route: 058
     Dates: start: 20140127
  2. FLUOXETINE [Suspect]
     Route: 048

REACTIONS (4)
  - Tonic clonic movements [None]
  - Blood pressure systolic increased [None]
  - Hypotension [None]
  - Procedural complication [None]
